FAERS Safety Report 15273523 (Version 1)
Quarter: 2018Q3

REPORT INFORMATION
  Report Type: Spontaneous
  Country: US (occurrence: US)
  Receive Date: 20180813
  Receipt Date: 20180813
  Transmission Date: 20181010
  Serious: No
  Sender: FDA-Public Use
  Company Number: US-GALDERMA-US18008169

PATIENT
  Age: 11 Year
  Sex: Female

DRUGS (3)
  1. PROACTIV MD ADAPALENE ACNE TREATMENT [Suspect]
     Active Substance: ADAPALENE
     Indication: ACNE
     Dosage: 0.1%
     Route: 061
     Dates: start: 20180106, end: 20180114
  2. PROACTIV MD DAILY OIL CONTROL SPF 30 [Suspect]
     Active Substance: AVOBENZONE\OCTISALATE\OCTOCRYLENE
     Indication: ACNE
     Route: 061
     Dates: start: 20180106, end: 20180114
  3. PROACTIV MD DEEP CLEANSING FACE WASH) [Concomitant]
     Indication: ACNE
     Route: 061
     Dates: start: 20180106, end: 20180114

REACTIONS (3)
  - Rash [Not Recovered/Not Resolved]
  - Rash macular [Not Recovered/Not Resolved]
  - Product use in unapproved indication [Recovered/Resolved]

NARRATIVE: CASE EVENT DATE: 20180106
